FAERS Safety Report 7672835-3 (Version None)
Quarter: 2011Q3

REPORT INFORMATION
  Report Type: 
  Country: None (occurrence: None)
  Receive Date: 20110809
  Receipt Date: 20110803
  Transmission Date: 20111222
  Serious: Yes (Other)
  Sender: FDA-Public Use
  Company Number: KR-BAYER-2011-052871

PATIENT
  Age: 45 Year
  Sex: Female

DRUGS (3)
  1. YASMIN [Suspect]
     Indication: UTERINE LEIOMYOMA
     Dosage: UNK
     Route: 048
     Dates: start: 20110101, end: 20110621
  2. YASMIN [Suspect]
     Indication: ENDOMETRIOSIS
  3. ANALGESICS [Concomitant]
     Indication: DYSMENORRHOEA

REACTIONS (1)
  - THROMBOSIS [None]
